FAERS Safety Report 6430927-0 (Version None)
Quarter: 2009Q4

REPORT INFORMATION
  Report Type: 
  Country: None (occurrence: None)
  Receive Date: 20091106
  Receipt Date: 20091028
  Transmission Date: 20100525
  Serious: Yes (Life-Threatening)
  Sender: FDA-Public Use
  Company Number: JP-AVENTIS-200912571JP

PATIENT
  Age: 52 Year
  Sex: Male
  Weight: 60.8 kg

DRUGS (9)
  1. TAXOTERE [Suspect]
     Indication: NON-SMALL CELL LUNG CANCER
     Route: 041
     Dates: start: 20090820, end: 20090910
  2. LANIZAC [Concomitant]
     Indication: NON-SMALL CELL LUNG CANCER
     Route: 048
     Dates: start: 20090730
  3. LANIRAPID [Concomitant]
     Indication: NON-SMALL CELL LUNG CANCER
     Route: 048
     Dates: start: 20090730
  4. MUCOSOLVAN [Concomitant]
     Indication: NON-SMALL CELL LUNG CANCER
     Route: 048
     Dates: start: 20090730
  5. GRIMAC [Concomitant]
     Indication: NON-SMALL CELL LUNG CANCER
     Route: 048
     Dates: start: 20090730
  6. ELIETEN                            /00041901/ [Concomitant]
     Indication: NON-SMALL CELL LUNG CANCER
     Route: 048
     Dates: start: 20090730
  7. CARBOPLATIN [Concomitant]
     Dates: start: 20090820
  8. DECADRON [Concomitant]
     Dates: start: 20090820, end: 20090910
  9. GRANISETRON HCL [Concomitant]
     Dates: start: 20090820, end: 20090910

REACTIONS (2)
  - ANAPHYLACTIC SHOCK [None]
  - CARDIO-RESPIRATORY ARREST [None]
